FAERS Safety Report 11133187 (Version 1)
Quarter: 2015Q2

REPORT INFORMATION
  Report Type: Report from Study
  Country: ES (occurrence: ES)
  Receive Date: 20150522
  Receipt Date: 20150522
  Transmission Date: 20150821
  Serious: Yes (Hospitalization)
  Sender: FDA-Public Use
  Company Number: ES-ABBVIE-15P-144-1393333-00

PATIENT
  Age: 23 Year
  Sex: Male
  Weight: 72.7 kg

DRUGS (2)
  1. ABT-450/RITONAVIR/ABT-267 [Suspect]
     Active Substance: OMBITASVIR\PARITAPREVIR\RITONAVIR
     Indication: HEPATITIS C
     Dosage: 12.5/75/50 MG, 2 IN 24 HOURS
     Route: 048
     Dates: start: 20150313
  2. ABT-333 [Suspect]
     Active Substance: DASABUVIR
     Indication: HEPATITIS C
     Route: 048
     Dates: start: 20150313

REACTIONS (2)
  - Migraine with aura [Recovered/Resolved]
  - Visual field defect [Unknown]

NARRATIVE: CASE EVENT DATE: 20150514
